FAERS Safety Report 18209280 (Version 8)
Quarter: 2020Q4

REPORT INFORMATION
  Report Type: Report from Study
  Country: US (occurrence: US)
  Receive Date: 20200828
  Receipt Date: 20201111
  Transmission Date: 20210113
  Serious: Yes (Hospitalization)
  Sender: FDA-Public Use
  Company Number: US-EISAI MEDICAL RESEARCH-EC-2020-079676

PATIENT
  Age: 71 Year
  Sex: Female
  Weight: 49.6 kg

DRUGS (24)
  1. SULFAMETHOXAZOLE [Concomitant]
     Active Substance: SULFAMETHOXAZOLE
     Dates: start: 20200429, end: 20200725
  2. REMERON [Concomitant]
     Active Substance: MIRTAZAPINE
     Dates: start: 20191115
  3. METOPROLOL. [Concomitant]
     Active Substance: METOPROLOL
     Dates: start: 20191226
  4. PANTOPRAZOLE [Concomitant]
     Active Substance: PANTOPRAZOLE
     Dates: start: 20200427
  5. LENVATINIB [Suspect]
     Active Substance: LENVATINIB
     Indication: ENDOMETRIAL CANCER
     Dosage: STARTING DOSE AT 20 MG; FLUCTUATED DOSAGE
     Route: 048
     Dates: start: 20190331, end: 20200726
  6. ACETAMINOPHEN. [Concomitant]
     Active Substance: ACETAMINOPHEN
     Dates: start: 20200606
  7. LEVOTHYROXINE SODIUM. [Concomitant]
     Active Substance: LEVOTHYROXINE SODIUM
     Dates: start: 20191023
  8. TRIAMTERENE. [Concomitant]
     Active Substance: TRIAMTERENE
     Dates: start: 20200123
  9. PEMBROLIZUMAB. [Suspect]
     Active Substance: PEMBROLIZUMAB
     Route: 041
     Dates: start: 20200527, end: 20200527
  10. LIDOCAINE + PRILOCAINE [Concomitant]
     Dates: start: 20190220
  11. POLYETHYLENE GLYCOL [Concomitant]
     Active Substance: POLYETHYLENE GLYCOLS
     Dates: start: 20190722
  12. MINERAL OIL (+) PETROLATUM (+) PHENYLEPHRINE HYDROCHLORIDE [Concomitant]
     Dates: start: 20190806, end: 20200814
  13. HYDROCHLOROTHIAZIDE. [Concomitant]
     Active Substance: HYDROCHLOROTHIAZIDE
     Dates: start: 20200123
  14. LENVATINIB [Suspect]
     Active Substance: LENVATINIB
     Route: 048
     Dates: start: 20200728, end: 20200728
  15. LENVATINIB [Suspect]
     Active Substance: LENVATINIB
     Dosage: STARTING DOSE AT 8 MILLIGRAM, QD, FLUCTUATED DOSE
     Route: 048
     Dates: start: 20200805
  16. VITAMINS [Concomitant]
     Active Substance: VITAMINS
     Dates: start: 20190731
  17. ONDANSETRON [Concomitant]
     Active Substance: ONDANSETRON
     Dates: start: 20200128
  18. PEMBROLIZUMAB. [Suspect]
     Active Substance: PEMBROLIZUMAB
     Indication: ENDOMETRIAL CANCER
     Route: 041
     Dates: start: 20190531, end: 20200318
  19. LORAZEPAM. [Concomitant]
     Active Substance: LORAZEPAM
     Dates: start: 20190621
  20. APIXABAN [Concomitant]
     Active Substance: APIXABAN
     Dates: start: 20200608, end: 20200727
  21. COZAAR [Concomitant]
     Active Substance: LOSARTAN POTASSIUM
     Dates: start: 20200130
  22. TRAMADOL HYDROCHLORIDE. [Concomitant]
     Active Substance: TRAMADOL HYDROCHLORIDE
     Dates: start: 20190806
  23. MAGNESIUM [Concomitant]
     Active Substance: MAGNESIUM
     Dates: start: 20191023
  24. TRIMETHOPRIM. [Concomitant]
     Active Substance: TRIMETHOPRIM
     Dates: start: 20200429, end: 20200725

REACTIONS (1)
  - Immune-mediated hepatitis [Recovered/Resolved]

NARRATIVE: CASE EVENT DATE: 20200729
